FAERS Safety Report 9387902 (Version 5)
Quarter: 2017Q4

REPORT INFORMATION
  Report Type: Spontaneous
  Country: US (occurrence: US)
  Receive Date: 20130708
  Receipt Date: 20171218
  Transmission Date: 20180321
  Serious: Yes (Hospitalization, Disabling, Other)
  Sender: FDA-Public Use
  Company Number: US-009507513-1307USA001905

PATIENT
  Sex: Female
  Weight: 63.04 kg

DRUGS (4)
  1. ALENDRONATE SODIUM. [Suspect]
     Active Substance: ALENDRONATE SODIUM
     Indication: PRODUCT USED FOR UNKNOWN INDICATION
     Dosage: 70 MG, UNK
     Route: 048
     Dates: start: 201001
  2. ALENDRONATE SODIUM. [Suspect]
     Active Substance: ALENDRONATE SODIUM
     Indication: PRODUCT USED FOR UNKNOWN INDICATION
     Dosage: 70 MG, UNK
     Route: 048
     Dates: start: 201101
  3. FOSAMAX [Suspect]
     Active Substance: ALENDRONATE SODIUM
     Indication: OSTEOPOROSIS
     Dosage: 70 MG, QW
     Route: 048
     Dates: start: 20050815, end: 20101215
  4. ALENDRONATE SODIUM. [Suspect]
     Active Substance: ALENDRONATE SODIUM
     Indication: PRODUCT USED FOR UNKNOWN INDICATION
     Dosage: 70 MG, QW
     Route: 048
     Dates: start: 201105

REACTIONS (26)
  - Femur fracture [Recovering/Resolving]
  - Body height decreased [Unknown]
  - Hydronephrosis [Unknown]
  - Essential hypertension [Unknown]
  - Femur fracture [Not Recovered/Not Resolved]
  - Hyperlipidaemia [Unknown]
  - Chronic kidney disease [Unknown]
  - Depression [Unknown]
  - Osteoarthritis [Unknown]
  - Upper limb fracture [Unknown]
  - Fracture nonunion [Recovering/Resolving]
  - Pain [Unknown]
  - Atrioventricular block first degree [Unknown]
  - Nausea [Unknown]
  - Anaemia postoperative [Unknown]
  - Ankle fracture [Unknown]
  - Spinal column stenosis [Unknown]
  - Chronic obstructive pulmonary disease [Unknown]
  - Gastrooesophageal reflux disease [Unknown]
  - Fall [Recovering/Resolving]
  - Transient ischaemic attack [Unknown]
  - Peptic ulcer [Unknown]
  - Hyponatraemia [Unknown]
  - Anxiety disorder [Unknown]
  - Pulmonary hypertension [Unknown]
  - Tricuspid valve incompetence [Unknown]

NARRATIVE: CASE EVENT DATE: 2008
